FAERS Safety Report 20666973 (Version 1)
Quarter: 2022Q2

REPORT INFORMATION
  Report Type: Spontaneous
  Country: US (occurrence: US)
  Receive Date: 20220404
  Receipt Date: 20220404
  Transmission Date: 20220720
  Serious: No
  Sender: FDA-Public Use
  Company Number: US-BIOVITRUM-2022US04691

PATIENT
  Sex: Male
  Weight: 7 kg

DRUGS (5)
  1. SYNAGIS [Interacting]
     Active Substance: PALIVIZUMAB
     Indication: Bronchopulmonary dysplasia
     Route: 030
     Dates: start: 202202
  2. SYNAGIS [Interacting]
     Active Substance: PALIVIZUMAB
     Indication: Low birth weight baby
  3. FAMOTIDINE [Concomitant]
     Active Substance: FAMOTIDINE
  4. SYNAGIS [Interacting]
     Active Substance: PALIVIZUMAB
     Indication: Premature baby
  5. VITAMINS [Concomitant]
     Active Substance: VITAMINS

REACTIONS (1)
  - Rash [Unknown]
